FAERS Safety Report 7896552-X (Version None)
Quarter: 2011Q4

REPORT INFORMATION
  Report Type: 
  Country: None (occurrence: None)
  Receive Date: 20111102
  Receipt Date: 20111024
  Transmission Date: 20120403
  Serious: Yes (Death)
  Sender: FDA-Public Use
  Company Number: ADR-2011-11399

PATIENT
  Age: 54 Year
  Sex: Female

DRUGS (1)
  1. BACLOFEN [Suspect]
     Indication: CANCER PAIN
     Dosage: 105.93 MCG,DAILY,INTR.
     Route: 037

REACTIONS (1)
  - COLON CANCER [None]
